FAERS Safety Report 6406954-6 (Version None)
Quarter: 2009Q4

REPORT INFORMATION
  Report Type: 
  Country: None (occurrence: None)
  Receive Date: 20091020
  Receipt Date: 20091012
  Transmission Date: 20100525
  Serious: Yes (Other)
  Sender: FDA-Public Use
  Company Number: US-ELI_LILLY_AND_COMPANY-US200910002858

PATIENT
  Age: 47 Year
  Sex: Female

DRUGS (1)
  1. EVISTA [Suspect]
     Dosage: UNK, UNKNOWN
     Route: 065
     Dates: start: 20080101, end: 20090101

REACTIONS (3)
  - DEEP VEIN THROMBOSIS [None]
  - FIBULA FRACTURE [None]
  - HYPERCOAGULATION [None]
